FAERS Safety Report 13766352 (Version 1)
Quarter: 2017Q3

REPORT INFORMATION
  Report Type: Report from Study
  Country: US (occurrence: US)
  Receive Date: 20170719
  Receipt Date: 20170719
  Transmission Date: 20171127
  Serious: Yes (Other)
  Sender: FDA-Public Use
  Company Number: US-BAYER-2017-131386

PATIENT
  Age: 57 Year
  Sex: Female

DRUGS (1)
  1. NEXAVAR [Suspect]
     Active Substance: SORAFENIB
     Indication: HEPATOCELLULAR CARCINOMA
     Dosage: 400 MG, BID
     Route: 048
     Dates: start: 20161101, end: 20161110

REACTIONS (7)
  - Abdominal pain [Recovered/Resolved]
  - Diarrhoea [None]
  - Alopecia [Recovered/Resolved]
  - Ocular icterus [Recovered/Resolved]
  - Fatigue [None]
  - Bedridden [None]
  - Yellow skin [Recovered/Resolved]

NARRATIVE: CASE EVENT DATE: 201611
